FAERS Safety Report 13255153 (Version 3)
Quarter: 2017Q1

REPORT INFORMATION
  Report Type: Spontaneous
  Country: JP (occurrence: JP)
  Receive Date: 20170221
  Receipt Date: 20170316
  Transmission Date: 20170428
  Serious: Yes (Hospitalization)
  Sender: FDA-Public Use
  Company Number: JP-ASTELLAS-2016JP021238

PATIENT
  Age: 72 Year
  Sex: Male

DRUGS (9)
  1. ZOLADEX LA [Concomitant]
     Active Substance: GOSERELIN ACETATE
     Indication: HORMONE-REFRACTORY PROSTATE CANCER
     Dosage: 10.8 MG, EVERY 3 MONTHS
     Route: 058
     Dates: start: 20151027
  2. ZOLEDRONIC ACID [Concomitant]
     Active Substance: ZOLEDRONIC ACID
     Indication: HORMONE-REFRACTORY PROSTATE CANCER
     Dosage: 3.5 MG, EVERY 2 MONTHS
     Route: 042
     Dates: start: 20160329
  3. FEBURIC [Concomitant]
     Active Substance: FEBUXOSTAT
     Indication: HYPERURICAEMIA
     Route: 048
     Dates: start: 20160903, end: 20161204
  4. XTANDI [Suspect]
     Active Substance: ENZALUTAMIDE
     Indication: HORMONE-REFRACTORY PROSTATE CANCER
     Route: 048
     Dates: start: 20161123, end: 20161204
  5. URALYT                             /01779901/ [Concomitant]
     Indication: HYPERURICAEMIA
     Route: 048
     Dates: start: 20160903, end: 20160911
  6. DECADRON [Concomitant]
     Active Substance: DEXAMETHASONE
     Indication: HORMONE-REFRACTORY PROSTATE CANCER
     Dosage: 0.5 MG, ONCE DAILY
     Route: 048
     Dates: start: 20160329, end: 20161121
  7. URALYT                             /01779901/ [Concomitant]
     Route: 048
     Dates: start: 20160912, end: 20161204
  8. AMOBANTES [Concomitant]
     Indication: INSOMNIA
     Dosage: 7.5 MG, AS NEEDED (WHEN SLEEPLESS)
     Route: 048
     Dates: start: 20160411
  9. CALONAL [Concomitant]
     Active Substance: ACETAMINOPHEN
     Indication: GOUT
     Route: 048
     Dates: start: 20161128, end: 20161204

REACTIONS (2)
  - Intentional underdose [Unknown]
  - Dyskinesia [Recovered/Resolved]

NARRATIVE: CASE EVENT DATE: 20161123
